FAERS Safety Report 9454210 (Version 2)
Quarter: 2013Q3

REPORT INFORMATION
  Report Type: Spontaneous
  Country: US (occurrence: US)
  Receive Date: 20130812
  Receipt Date: 20130824
  Transmission Date: 20140515
  Serious: No
  Sender: FDA-Public Use
  Company Number: US-009507513-1308USA002846

PATIENT
  Age: 18 Year
  Sex: Female
  Weight: 71.2 kg

DRUGS (1)
  1. IMPLANON [Suspect]
     Indication: CONTRACEPTION
     Dosage: 68 MG ETONOGESTREL
     Route: 059
     Dates: start: 20120710, end: 20130805

REACTIONS (1)
  - Unintended pregnancy [Unknown]
